FAERS Safety Report 6654377-7 (Version None)
Quarter: 2010Q1

REPORT INFORMATION
  Report Type: 
  Country: None (occurrence: None)
  Receive Date: 20100326
  Receipt Date: 20100315
  Transmission Date: 20100710
  Serious: Yes (Other)
  Sender: FDA-Public Use
  Company Number: GB-PFIZER INC-2010033554

PATIENT
  Age: 16 Year
  Sex: Female

DRUGS (2)
  1. PHENYTOIN SODIUM CAP [Suspect]
     Dosage: UNK
  2. ADCAL-D3 [Suspect]
     Indication: MINERAL SUPPLEMENTATION
     Dosage: UNK

REACTIONS (2)
  - CONVULSION [None]
  - DRUG INTERACTION [None]
